FAERS Safety Report 6210097-4 (Version None)
Quarter: 2009Q2

REPORT INFORMATION
  Report Type: 
  Country: None (occurrence: None)
  Receive Date: 20090527
  Receipt Date: 20090518
  Transmission Date: 20091009
  Serious: Yes (Hospitalization, Other)
  Sender: FDA-Public Use
  Company Number: GXKR2009IT05956

PATIENT
  Age: 41 Year
  Sex: Female

DRUGS (1)
  1. SALBUTAMOL (NGX) SALBUTAMOL) [Suspect]
     Indication: ASTHMA
     Dosage: CUMULATIVE DOSE: 2 G, INHALATION
     Route: 055

REACTIONS (4)
  - ACUTE MYOCARDIAL INFARCTION [None]
  - ARTERIOSPASM CORONARY [None]
  - HYPOKALAEMIA [None]
  - INCORRECT DRUG ADMINISTRATION RATE [None]
